FAERS Safety Report 17157615 (Version 1)
Quarter: 2019Q4

REPORT INFORMATION
  Report Type: Spontaneous
  Country: US (occurrence: US)
  Receive Date: 20191213
  Receipt Date: 20191213
  Transmission Date: 20200122
  Serious: No
  Sender: FDA-Public Use
  Company Number: None

PATIENT
  Age: 71 Year
  Sex: Male
  Weight: 76.95 kg

DRUGS (15)
  1. VITAMIN D3 [Concomitant]
     Active Substance: CHOLECALCIFEROL
  2. FLUTICASONE. [Concomitant]
     Active Substance: FLUTICASONE
  3. GLUCOSAMINE [Concomitant]
     Active Substance: GLUCOSAMINE
  4. CHONDROITIN-MSM [Concomitant]
  5. TESTOSTERONE. [Concomitant]
     Active Substance: TESTOSTERONE
  6. FINISTERIDE 1 OR 5MG MERCK [Concomitant]
     Active Substance: FINASTERIDE
  7. IRBESARTAN. [Concomitant]
     Active Substance: IRBESARTAN
  8. CRANBERRY CONCENTRATE [Concomitant]
     Active Substance: CRANBERRY CONCENTRATE
  9. FIBER CAPS [Concomitant]
     Active Substance: CALCIUM POLYCARBOPHIL
  10. TAMSULOSIN [Concomitant]
     Active Substance: TAMSULOSIN
  11. ALLOPURINOL. [Concomitant]
     Active Substance: ALLOPURINOL
  12. FAMOTIDINE. [Concomitant]
     Active Substance: FAMOTIDINE
  13. C-PAP MACHINE [Concomitant]
     Active Substance: DEVICE
  14. LORATADINE. [Concomitant]
     Active Substance: LORATADINE
  15. SULFAMETHOXAZOLE-TMP DS TABLET [Suspect]
     Active Substance: SULFAMETHOXAZOLE\TRIMETHOPRIM
     Indication: URINARY TRACT INFECTION
     Dosage: ?          QUANTITY:1 TABLET(S);?
     Route: 048
     Dates: start: 20191206, end: 20191212

REACTIONS (5)
  - Muscular weakness [None]
  - Blood glucose decreased [None]
  - Tremor [None]
  - Mood altered [None]
  - Paraesthesia [None]

NARRATIVE: CASE EVENT DATE: 20191212
